FAERS Safety Report 11106899 (Version 2)
Quarter: 2015Q2

REPORT INFORMATION
  Report Type: Spontaneous
  Country: IT (occurrence: None)
  Receive Date: 20150508
  Receipt Date: 20150520
  Transmission Date: 20150821
  Serious: Yes (Other)
  Sender: FDA-Public Use
  Company Number: IT2015GSK060437

PATIENT
  Sex: Female

DRUGS (3)
  1. NORVIR [Concomitant]
     Active Substance: RITONAVIR
  2. PREZISTA [Concomitant]
     Active Substance: DARUNAVIR ETHANOLATE
  3. EPIVIR [Suspect]
     Active Substance: LAMIVUDINE
     Indication: HIV INFECTION
     Dosage: 300 MG, 1D
     Route: 048
     Dates: start: 201502

REACTIONS (4)
  - Wrong technique in drug usage process [None]
  - Asthenia [None]
  - Mental impairment [None]
  - Abdominal distension [None]

NARRATIVE: CASE EVENT DATE: 201502
